FAERS Safety Report 24173995 (Version 1)
Quarter: 2024Q3

REPORT INFORMATION
  Report Type: Spontaneous
  Country: AR (occurrence: AR)
  Receive Date: 20240805
  Receipt Date: 20240805
  Transmission Date: 20241016
  Serious: Yes (Other)
  Sender: ROCHE
  Company Number: AR-ROCHE-10000039885

PATIENT
  Age: 45 Year
  Sex: Male

DRUGS (17)
  1. RITUXIMAB [Suspect]
     Active Substance: RITUXIMAB
     Indication: Follicular lymphoma
     Dosage: DOSE AND FREQUENCY WERE NOT REPORTED, 2 CYCLES
     Route: 065
     Dates: start: 20220201, end: 20220701
  2. RITUXIMAB [Suspect]
     Active Substance: RITUXIMAB
     Dosage: DOSE AND FREQUENCY WERE NOT REPORTED, 6 CYCLES
     Route: 050
     Dates: start: 20240101, end: 20240601
  3. RITUXIMAB [Suspect]
     Active Substance: RITUXIMAB
     Route: 065
     Dates: start: 20240226, end: 20240521
  4. ETOPOSIDE [Suspect]
     Active Substance: ETOPOSIDE
     Indication: Follicular lymphoma
     Dosage: DOSE AND FREQUENCY WERE NOT REPORTED, 2 CYCLES
     Route: 065
     Dates: start: 20221201, end: 20230201
  5. METHYLPREDNISOLONE [Suspect]
     Active Substance: METHYLPREDNISOLONE
     Indication: Follicular lymphoma
     Dosage: DOSE AND FREQUENCY WERE NOT REPORTED, 2 CYCLES
     Route: 065
     Dates: start: 20220201, end: 20220701
  6. CISPLATIN [Suspect]
     Active Substance: CISPLATIN
     Indication: Follicular lymphoma
     Dosage: DOSE AND FREQUENCY WERE NOT REPORTED, 2 CYCLES
     Route: 065
     Dates: start: 20221201, end: 20230201
  7. BENDAMUSTINE [Suspect]
     Active Substance: BENDAMUSTINE
     Indication: Follicular lymphoma
     Dosage: DOSE AND FREQUENCY WERE NOT REPORTED, 2 CYCLES
     Route: 065
     Dates: start: 20230801, end: 20231101
  8. PREDNISONE [Suspect]
     Active Substance: PREDNISONE
     Indication: Follicular lymphoma
     Dosage: DOSE AND FREQUENCY WERE NOT REPORTED, 6 CYCLES
     Route: 065
     Dates: start: 20220201, end: 20220701
  9. CYCLOPHOSPHAMIDE [Suspect]
     Active Substance: CYCLOPHOSPHAMIDE
     Indication: Follicular lymphoma
     Dosage: DOSE AND FREQUENCY WERE NOT REPORTED, 6 CYCLES
     Route: 065
     Dates: start: 20221201, end: 20230201
  10. DOXORUBICIN [Suspect]
     Active Substance: DOXORUBICIN
     Indication: Follicular lymphoma
     Dosage: DOSE AND FREQUENCY WERE NOT REPORTED, 6 CYCLES
     Route: 065
     Dates: start: 20221201, end: 20230201
  11. VINCRISTINE [Suspect]
     Active Substance: VINCRISTINE
     Indication: Follicular lymphoma
     Dosage: DOSE AND FREQUENCY WERE NOT REPORTED, 2 CYCLES
     Route: 065
     Dates: start: 20220201, end: 20220701
  12. VINCRISTINE [Suspect]
     Active Substance: VINCRISTINE
     Dosage: DOSE AND FREQUENCY WERE NOT REPORTED, 6 CYCLES
     Route: 065
     Dates: start: 20221201, end: 20230201
  13. CYTARABINE [Suspect]
     Active Substance: CYTARABINE
     Indication: Follicular lymphoma
     Dosage: DOSE AND FREQUENCY WERE NOT REPORTED, 2 CYCLES
     Route: 065
     Dates: start: 20221201, end: 20230201
  14. FILGRASTIM [Concomitant]
     Active Substance: FILGRASTIM
     Indication: Follicular lymphoma
     Dosage: DOSE AND FREQUENCY WERE NOT REPORTED
     Dates: start: 20230409
  15. FILGRASTIM [Concomitant]
     Active Substance: FILGRASTIM
     Dosage: DOSE AND FREQUENCY WERE NOT REPORTED, 2 CYCLES
  16. DIPHENHYDRAMINE [Concomitant]
     Active Substance: DIPHENHYDRAMINE
     Indication: Premedication
     Dosage: FREQUENCY WAS NOT REPORTED
  17. DIPHENHYDRAMINE [Concomitant]
     Active Substance: DIPHENHYDRAMINE
     Dosage: DOSE AND FREQUENCY WERE NOT REPORTED, 2 CYCLES

REACTIONS (1)
  - Disease progression [Not Recovered/Not Resolved]
